FAERS Safety Report 21062046 (Version 2)
Quarter: 2022Q3

REPORT INFORMATION
  Report Type: Spontaneous
  Country: US (occurrence: US)
  Receive Date: 20220710
  Receipt Date: 20220713
  Transmission Date: 20221027
  Serious: No
  Sender: FDA-Public Use
  Company Number: US-SANOFI-01173288

PATIENT
  Age: 3 Year

DRUGS (1)
  1. DUPIXENT [Suspect]
     Active Substance: DUPILUMAB
     Indication: Eczema
     Dosage: 200 MG, QM
     Dates: start: 20220630

REACTIONS (4)
  - Molluscum contagiosum [Unknown]
  - Rash [Unknown]
  - Drug ineffective [Unknown]
  - Product use issue [Unknown]
